FAERS Safety Report 18254321 (Version 1)
Quarter: 2020Q3

REPORT INFORMATION
  Report Type: Other
  Country: PL (occurrence: PL)
  Receive Date: 20200911
  Receipt Date: 20200911
  Transmission Date: 20201103
  Serious: Yes (Other)
  Sender: FDA-Public Use
  Company Number: PL-ROCHE-2674334

PATIENT
  Age: 27 Year
  Sex: Male
  Weight: 86 kg

DRUGS (7)
  1. CHLOROQUINE. [Concomitant]
     Active Substance: CHLOROQUINE
  2. MEROPENEM. [Concomitant]
     Active Substance: MEROPENEM
  3. AZITHROMYCIN ANHYDROUS. [Concomitant]
     Active Substance: AZITHROMYCIN ANHYDROUS
  4. AMOXICILLIN. [Concomitant]
     Active Substance: AMOXICILLIN
  5. CLARITHROMYCIN. [Concomitant]
     Active Substance: CLARITHROMYCIN
  6. VANCOMYCIN [Concomitant]
     Active Substance: VANCOMYCIN
  7. TOCILIZUMAB. [Suspect]
     Active Substance: TOCILIZUMAB
     Indication: COVID-19 PNEUMONIA
     Dosage: TWO DOSES OF 800 MG
     Route: 042

REACTIONS (5)
  - Intentional product use issue [Unknown]
  - Transaminases increased [Not Recovered/Not Resolved]
  - Renal impairment [Unknown]
  - Off label use [Unknown]
  - Gamma-glutamyltransferase increased [Unknown]
